FAERS Safety Report 10978353 (Version 3)
Quarter: 2016Q4

REPORT INFORMATION
  Report Type: Spontaneous
  Country: US (occurrence: US)
  Receive Date: 20150402
  Receipt Date: 20161130
  Transmission Date: 20170206
  Serious: Yes (Disabling)
  Sender: FDA-Public Use
  Company Number: US-009507513-1503USA015029

PATIENT
  Sex: Male

DRUGS (1)
  1. PROPECIA [Suspect]
     Active Substance: FINASTERIDE
     Indication: ALOPECIA
     Dosage: 1 MG, UNKNOWN
     Route: 048
     Dates: start: 200811, end: 200902

REACTIONS (42)
  - Anxiety [Unknown]
  - Somnolence [Unknown]
  - Restlessness [Unknown]
  - Dyspepsia [Unknown]
  - Disturbance in attention [Unknown]
  - Cognitive disorder [Not Recovered/Not Resolved]
  - Chest discomfort [Unknown]
  - Abdominal pain upper [Unknown]
  - Vision blurred [Unknown]
  - Headache [Unknown]
  - Loss of libido [Unknown]
  - Panic attack [Unknown]
  - Visual acuity reduced [Unknown]
  - Affective disorder [Unknown]
  - Somatic symptom disorder [Unknown]
  - Head discomfort [Unknown]
  - Sexual dysfunction [Unknown]
  - Muscular weakness [Unknown]
  - Hyperacusis [Unknown]
  - Alopecia [Unknown]
  - Body temperature decreased [Unknown]
  - Insomnia [Unknown]
  - Depression [Unknown]
  - Amnesia [Unknown]
  - Dysuria [Unknown]
  - Dizziness [Unknown]
  - Dyspnoea [Unknown]
  - Temperature intolerance [Unknown]
  - Erectile dysfunction [Unknown]
  - Testicular pain [Unknown]
  - Anorgasmia [Unknown]
  - Dark circles under eyes [Unknown]
  - Chest pain [Unknown]
  - Sexual dysfunction [Not Recovered/Not Resolved]
  - Hypogonadism [Unknown]
  - Fatigue [Unknown]
  - Narcissistic personality disorder [Unknown]
  - Adverse event [Unknown]
  - Semen volume decreased [Unknown]
  - Post-traumatic stress disorder [Unknown]
  - Palpitations [Unknown]
  - Confusional state [Unknown]

NARRATIVE: CASE EVENT DATE: 200812
